FAERS Safety Report 17078933 (Version 1)
Quarter: 2019Q4

REPORT INFORMATION
  Report Type: Spontaneous
  Country: AU (occurrence: AU)
  Receive Date: 20191127
  Receipt Date: 20191127
  Transmission Date: 20200122
  Serious: Yes (Other)
  Sender: FDA-Public Use
  Company Number: AU-CIPLA (EU) LIMITED-2019AU07692

PATIENT

DRUGS (9)
  1. VALGANCICLOVIR. [Suspect]
     Active Substance: VALGANCICLOVIR
     Indication: CYTOMEGALOVIRUS INFECTION
     Dosage: 450 MILLIGRAM, TWICE WEEKLY
     Route: 048
  2. VALGANCICLOVIR. [Suspect]
     Active Substance: VALGANCICLOVIR
     Dosage: 450 MILLIGRAM, DAILY
     Route: 048
  3. METHYLPREDNISOLONE. [Concomitant]
     Active Substance: METHYLPREDNISOLONE
     Indication: IMMUNOSUPPRESSION
     Dosage: UNK, DAYS 0 AND 4
     Route: 065
  4. BASILIXIMAB [Concomitant]
     Active Substance: BASILIXIMAB
     Indication: IMMUNOSUPPRESSION
     Dosage: UNK, DAYS 0 AND 4
     Route: 042
  5. VALGANCICLOVIR. [Suspect]
     Active Substance: VALGANCICLOVIR
     Dosage: 200 MILLIGRAM, THREE TIMES A WEEK AFTER DIALYSIS
     Route: 048
  6. VALGANCICLOVIR. [Suspect]
     Active Substance: VALGANCICLOVIR
     Dosage: 450 MILLIGRAM, BID
     Route: 048
  7. MYCOPHENOLATE MOFETIL. [Concomitant]
     Active Substance: MYCOPHENOLATE MOFETIL
     Indication: IMMUNOSUPPRESSION
     Dosage: UNK
     Route: 065
  8. PREDNISOLONE. [Concomitant]
     Active Substance: PREDNISOLONE
     Indication: IMMUNOSUPPRESSION
     Dosage: UNK
     Route: 065
  9. TACROLIMUS. [Concomitant]
     Active Substance: TACROLIMUS
     Indication: IMMUNOSUPPRESSION
     Dosage: UNK
     Route: 065

REACTIONS (3)
  - Cytomegalovirus viraemia [Recovered/Resolved]
  - Bone marrow failure [Unknown]
  - Disease recurrence [Recovered/Resolved]
